FAERS Safety Report 16331854 (Version 1)
Quarter: 2019Q2

REPORT INFORMATION
  Report Type: Spontaneous
  Country: US (occurrence: US)
  Receive Date: 20190520
  Receipt Date: 20190520
  Transmission Date: 20190711
  Serious: Yes (Other)
  Sender: FDA-Public Use
  Company Number: US-SA-2019SA135960

PATIENT
  Sex: Female

DRUGS (4)
  1. DUPIXENT [Suspect]
     Active Substance: DUPILUMAB
     Indication: DERMATITIS ATOPIC
     Dosage: 300 MG, QOW
     Route: 058
     Dates: start: 201903
  2. HYDROCORTISONE. [Concomitant]
     Active Substance: HYDROCORTISONE
  3. CLOBETASOL [Concomitant]
     Active Substance: CLOBETASOL
  4. TRIAMCINOLONE ACETONIDE. [Concomitant]
     Active Substance: TRIAMCINOLONE ACETONIDE

REACTIONS (1)
  - Chlamydial infection [Not Recovered/Not Resolved]

NARRATIVE: CASE EVENT DATE: 201903
